FAERS Safety Report 7023472-5 (Version None)
Quarter: 2010Q3

REPORT INFORMATION
  Report Type: 
  Country: None (occurrence: None)
  Receive Date: 20100929
  Receipt Date: 20100723
  Transmission Date: 20110219
  Serious: Yes (Other)
  Sender: FDA-Public Use
  Company Number: 2010US002923

PATIENT
  Sex: Male

DRUGS (1)
  1. LEXISCAN [Suspect]
     Indication: SCAN MYOCARDIAL PERFUSION
     Dosage: UNK IV NOS
     Route: 042

REACTIONS (2)
  - DRUG HYPERSENSITIVITY [None]
  - NO THERAPEUTIC RESPONSE [None]
